FAERS Safety Report 5072376-6 (Version None)
Quarter: 2006Q3

REPORT INFORMATION
  Report Type: 
  Country: None (occurrence: None)
  Receive Date: 20060710
  Receipt Date: 20060510
  Transmission Date: 20061208
  Serious: Yes (Other)
  Sender: FDA-Public Use
  Company Number: PROG00206001541

PATIENT
  Sex: Female

DRUGS (1)
  1. PROMETRIUM [Suspect]
     Indication: ILL-DEFINED DISORDER
     Dosage: UNKNOWN DAILY ORAL DAILY DOSE: 200 MG DAILY FOR 12 DAYS EACH MONTH
     Route: 048
     Dates: end: 20060501

REACTIONS (2)
  - DIZZINESS [None]
  - SYNCOPE [None]
